FAERS Safety Report 13733724 (Version 1)
Quarter: 2017Q3

REPORT INFORMATION
  Report Type: Spontaneous
  Country: CH (occurrence: CH)
  Receive Date: 20170707
  Receipt Date: 20170707
  Transmission Date: 20171127
  Serious: Yes (Hospitalization, Other)
  Sender: FDA-Public Use
  Company Number: CH-009507513-1706CHE010094

PATIENT
  Age: 14 Year
  Sex: Female
  Weight: 42 kg

DRUGS (9)
  1. NAPROXEN. [Concomitant]
     Active Substance: NAPROXEN
     Dosage: UNK
     Dates: start: 201610, end: 20170327
  2. ILARIS [Concomitant]
     Active Substance: CANAKINUMAB
     Dosage: 150 MG, QW
     Route: 058
  3. KINERET [Suspect]
     Active Substance: ANAKINRA
     Indication: JUVENILE IDIOPATHIC ARTHRITIS
     Dosage: 200 MG, QD
     Route: 058
     Dates: start: 20170331, end: 20170526
  4. METHOTREXATE. [Suspect]
     Active Substance: METHOTREXATE
     Dosage: 20 MG, QW
     Route: 058
     Dates: start: 20161005, end: 20170418
  5. OCTAGAM IMMUNE GLOBULIN (HUMAN) [Suspect]
     Active Substance: HUMAN IMMUNOGLOBULIN G
     Dosage: 20 G, EVERY 4 WEEKS
     Route: 042
     Dates: start: 20160608
  6. IRON (UNSPECIFIED) [Concomitant]
     Active Substance: IRON
     Dosage: 63 MG, QW
     Dates: start: 20170201, end: 20170301
  7. NOXAFIL [Suspect]
     Active Substance: POSACONAZOLE
     Route: 048
     Dates: start: 20151204, end: 20170427
  8. CYCLOSPORINE. [Concomitant]
     Active Substance: CYCLOSPORINE
     Route: 048
     Dates: start: 20160913
  9. PREDNISOLON [Concomitant]
     Active Substance: PREDNISOLONE
     Dates: start: 20150104

REACTIONS (5)
  - Haemorrhage [Recovering/Resolving]
  - Abdominal pain [Recovering/Resolving]
  - Haematoma [Recovering/Resolving]
  - Liver injury [Recovering/Resolving]
  - Jaundice [Recovering/Resolving]

NARRATIVE: CASE EVENT DATE: 20170424
